FAERS Safety Report 20831087 (Version 2)
Quarter: 2022Q2

REPORT INFORMATION
  Report Type: Spontaneous
  Country: US (occurrence: US)
  Receive Date: 20220515
  Receipt Date: 20220531
  Transmission Date: 20220721
  Serious: No
  Sender: FDA-Public Use
  Company Number: US-AMGEN-USASP2022077692

PATIENT
  Sex: Female
  Weight: 79.365 kg

DRUGS (26)
  1. REPATHA [Suspect]
     Active Substance: EVOLOCUMAB
     Indication: Hyperlipidaemia
     Dosage: 140 MILLIGRAM, Q2WK
     Route: 058
  2. REPATHA [Suspect]
     Active Substance: EVOLOCUMAB
     Dosage: 140 MILLIGRAM, Q2WK
     Route: 058
  3. XANAX [Concomitant]
     Active Substance: ALPRAZOLAM
     Dosage: 1/2 TO 1 TABLET DAILY AS NEEDED
     Route: 048
     Dates: start: 20220126
  4. NORVASC [Concomitant]
     Active Substance: AMLODIPINE BESYLATE
     Dosage: 10 MILLIGRAM, QD
     Route: 048
     Dates: start: 20210929
  5. ASPIRIN [Concomitant]
     Active Substance: ASPIRIN
     Dosage: 81 MILLIGRAM, QD
     Route: 048
  6. VITAMIN B COMPLEX [Concomitant]
     Active Substance: CYANOCOBALAMIN\DEXPANTHENOL\NIACINAMIDE\PYRIDOXINE HYDROCHLORIDE\RIBOFLAVIN 5^-PHOSPHATE SODIUM\THIA
     Dosage: TAKE 1 TABLET BY MOUTH ONCE DAILY
     Route: 048
  7. BISACODYL [Concomitant]
     Active Substance: BISACODYL
     Dosage: 20 MILLIGRAM, QD
     Route: 048
     Dates: start: 20210520
  8. CHOLECALCIFEROL [Concomitant]
     Active Substance: CHOLECALCIFEROL
     Dosage: TAKE 1 TABLET BY MOUTH ONCE DAILY
     Route: 048
  9. CATAPRES [Concomitant]
     Active Substance: CLONIDINE HYDROCHLORIDE
     Dosage: 0.1 MILLIGRAM, BID
     Route: 048
     Dates: start: 20220329
  10. ESTRACE [Concomitant]
     Active Substance: ESTRADIOL
     Dosage: INSERT ONE GRAM VAGINALLY 1 TO 3 TIMES WEEKLY
     Route: 067
     Dates: start: 20211013
  11. ESTRACE [Concomitant]
     Active Substance: ESTRADIOL
     Dosage: 0.5 MILLIGRAM, QD
     Route: 048
     Dates: start: 20220216
  12. DIFLUCAN [Concomitant]
     Active Substance: FLUCONAZOLE
     Dosage: 200 MILLIGRAM, QD
     Route: 048
     Dates: start: 20210703
  13. ANUSOL HC [Concomitant]
     Active Substance: HYDROCORTISONE
     Dosage: 25 MILLIGRAM, BID
     Route: 054
     Dates: start: 20201019, end: 20201111
  14. LACTOBACILLUS ACIDOPHILUS [Concomitant]
     Active Substance: LACTOBACILLUS ACIDOPHILUS
     Dosage: 1 TABLET BY MOUTH ONCE DAILY
     Route: 048
  15. PRINIVIL [Concomitant]
     Active Substance: LISINOPRIL
     Dosage: 10 MILLIGRAM, BID
     Route: 048
     Dates: start: 20211124
  16. METFORMIN [Concomitant]
     Active Substance: METFORMIN HYDROCHLORIDE
     Dosage: 500 MILLIGRAM, BID
     Route: 048
     Dates: start: 20210526
  17. LOPRESSOR [Concomitant]
     Active Substance: METOPROLOL TARTRATE
     Dosage: 100 MILLIGRAM, BID
     Route: 048
     Dates: start: 20220314
  18. MYCOSTATIN [Concomitant]
     Active Substance: NYSTATIN
     Dosage: TOPICALLY 2 (TWO) TIMES A DAY
     Route: 061
     Dates: start: 20210526
  19. MYCOLOG [Concomitant]
     Active Substance: GRAMICIDIN\NEOMYCIN SULFATE\NYSTATIN\TRIAMCINOLONE ACETONIDE
     Dosage: APPLY TO THE AFFECTED AREA TWICE DAILY FOR 7 DAYS ON AND 3 DAYS OFF
     Route: 061
     Dates: start: 20211128
  20. DITROPAN XL [Concomitant]
     Active Substance: OXYBUTYNIN CHLORIDE
     Dosage: 5 MILLIGRAM, QD
     Route: 048
     Dates: start: 20210526
  21. GOLYTELY [Concomitant]
     Active Substance: POLYETHYLENE GLYCOL 3350\POTASSIUM CHLORIDE\SODIUM BICARBONATE\SODIUM CHLORIDE\SODIUM SULFATE
     Dosage: 236-22.74-6.74 -5.86 GRAM SOLUTION
     Route: 065
  22. KLOR-CON [Concomitant]
     Active Substance: POTASSIUM CHLORIDE
     Dosage: 1 TABLET BY MOUTH EVERY DAY
     Route: 048
     Dates: start: 20220430
  23. SIMETHICONE (DIMETHICONE) [Concomitant]
     Active Substance: DIMETHICONE
     Dosage: 80 MILLIGRAM, BID
     Route: 048
     Dates: start: 20220429
  24. KENALOG [Concomitant]
     Active Substance: TRIAMCINOLONE ACETONIDE
     Dosage: APPLY EXTERNALLY TO THE AFFECTED AREA TWICE DAILY AS NEEDED
     Route: 061
     Dates: start: 20200219
  25. DYAZIDE [Concomitant]
     Active Substance: HYDROCHLOROTHIAZIDE\TRIAMTERENE
     Dosage: 37.5-25 MG, 1 CAPSULE BY MOUTH EVERY MORNING
     Route: 048
     Dates: start: 20220329
  26. FENOFIBRATE [Concomitant]
     Active Substance: FENOFIBRATE
     Dosage: 160 UNK, QD
     Route: 048
     Dates: start: 20201006

REACTIONS (1)
  - Device difficult to use [Unknown]
